FAERS Safety Report 23245017 (Version 1)
Quarter: 2023Q4

REPORT INFORMATION
  Report Type: Report from Study
  Country: US (occurrence: US)
  Receive Date: 20231130
  Receipt Date: 20231130
  Transmission Date: 20240110
  Serious: Yes (Other)
  Sender: FDA-Public Use
  Company Number: US-JNJFOC-20231165952

PATIENT
  Sex: Male

DRUGS (3)
  1. SPRAVATO [Suspect]
     Active Substance: ESKETAMINE
     Indication: Depression
  2. SPRAVATO [Suspect]
     Active Substance: ESKETAMINE
     Dates: start: 20231116, end: 20231116
  3. SPRAVATO [Suspect]
     Active Substance: ESKETAMINE
     Dates: start: 20231120, end: 20231120

REACTIONS (7)
  - Suicidal ideation [Recovered/Resolved]
  - Tendon pain [Not Recovered/Not Resolved]
  - Nausea [Unknown]
  - Depersonalisation/derealisation disorder [Unknown]
  - Sedation [Recovered/Resolved]
  - Psychomotor hyperactivity [Unknown]
  - Anxiety [Not Recovered/Not Resolved]

NARRATIVE: CASE EVENT DATE: 20231101
